FAERS Safety Report 16984642 (Version 1)
Quarter: 2019Q4

REPORT INFORMATION
  Report Type: Spontaneous
  Country: US (occurrence: US)
  Receive Date: 20191101
  Receipt Date: 20191101
  Transmission Date: 20200122
  Serious: No
  Sender: FDA-Public Use
  Company Number: US-SA-2019SA301210

PATIENT
  Age: 59 Year
  Sex: Male

DRUGS (1)
  1. DUPIXENT [Suspect]
     Active Substance: DUPILUMAB
     Dosage: 300
     Route: 058
     Dates: start: 20190213

REACTIONS (4)
  - Vision blurred [Unknown]
  - Blepharitis [Unknown]
  - Product dose omission [Unknown]
  - Eye inflammation [Unknown]
